FAERS Safety Report 5230229-4 (Version None)
Quarter: 2007Q1

REPORT INFORMATION
  Report Type: 
  Country: None (occurrence: None)
  Receive Date: 20070206
  Receipt Date: 20061010
  Transmission Date: 20070707
  Serious: No
  Sender: FDA-Public Use
  Company Number: US-GLAXOSMITHKLINE-A0623097A

PATIENT
  Age: 55 Year
  Sex: Male

DRUGS (2)
  1. PAXIL CR [Suspect]
     Indication: DEPRESSION
     Dosage: 37.5MG TWICE PER DAY
     Route: 048
  2. MOOD MEDICATION [Concomitant]

REACTIONS (3)
  - HEADACHE [None]
  - PARAESTHESIA [None]
  - TREMOR [None]
